FAERS Safety Report 8615277 (Version 2)
Quarter: 2012Q4

REPORT INFORMATION
  Report Type: 
  Country: US (occurrence: US)
  Receive Date: 20120614
  Receipt Date: 20120927
  Transmission Date: 20130627
  Serious: No
  Sender: FDA-Public Use
  Company Number: US-AMGEN-USASP2012013725

PATIENT
  Age: 83 Year
  Sex: Female

DRUGS (25)
  1. PROLIA [Suspect]
     Indication: OSTEOPOROSIS POSTMENOPAUSAL
     Dosage: 60 mg, q6mo
     Dates: start: 20110812
  2. TOPROL [Concomitant]
     Dosage: UNK
  3. METROGEL [Concomitant]
     Dosage: UNK
  4. XANAX [Concomitant]
     Dosage: UNK
  5. PANCREASE [Concomitant]
     Dosage: UNK
  6. SINGULAIR [Concomitant]
     Dosage: UNK
  7. PREMARIN [Concomitant]
     Dosage: UNK
  8. HYDROCODONE [Concomitant]
     Dosage: UNK
  9. METFORMIN [Concomitant]
     Dosage: UNK
  10. DIOVAN [Concomitant]
     Dosage: UNK
  11. FUROSEMIDE [Concomitant]
     Dosage: UNK
  12. KLOR-CON [Concomitant]
     Dosage: UNK
  13. VIGAMOX [Concomitant]
     Dosage: UNK
  14. LUCENTIS [Concomitant]
     Dosage: UNK
  15. NEPTAZANE [Concomitant]
     Dosage: UNK
  16. ZYRTEC [Concomitant]
     Dosage: UNK
  17. CENTRUM [Concomitant]
     Dosage: UNK
  18. FLORA [Concomitant]
     Dosage: UNK
  19. CRANBERRY [Concomitant]
     Dosage: UNK
  20. CITRACAL [Concomitant]
     Dosage: UNK
  21. OMEGA 3 [Concomitant]
     Dosage: UNK
  22. VITAMIN E [Concomitant]
     Dosage: UNK
  23. DEXILANT [Concomitant]
     Dosage: UNK
  24. COENZYME Q10 [Concomitant]
     Dosage: UNK
  25. CHLORHEXIDINE [Concomitant]
     Dosage: UNK

REACTIONS (1)
  - Endodontic procedure [Unknown]
